FAERS Safety Report 9804982 (Version 3)
Quarter: 2014Q1

REPORT INFORMATION
  Report Type: Report from Study
  Country: US (occurrence: US)
  Receive Date: 20140109
  Receipt Date: 20140124
  Transmission Date: 20141002
  Serious: Yes (Hospitalization)
  Sender: FDA-Public Use
  Company Number: US-PFIZER INC-2013374261

PATIENT
  Age: 56 Year
  Sex: Male
  Weight: 132.5 kg

DRUGS (13)
  1. CELECOXIB [Suspect]
     Indication: RHEUMATOID ARTHRITIS
     Dosage: 100 MG, 2X/DAY
     Route: 048
     Dates: start: 20121016, end: 20131221
  2. CELECOXIB [Suspect]
     Indication: OSTEOARTHRITIS
  3. NEXIUM [Concomitant]
     Indication: PROPHYLAXIS
     Dosage: 40 MG, QD
     Route: 048
     Dates: start: 20121016
  4. PROBENECID [Concomitant]
     Indication: GOUT
     Dosage: 500 MG, BID
     Route: 048
     Dates: start: 2009
  5. COREG [Concomitant]
     Indication: CORONARY ARTERY DISEASE
     Dosage: 25 MG, 2X/DAY
     Route: 048
     Dates: start: 20070204
  6. COREG [Concomitant]
     Indication: HYPERTENSION
  7. LEXAPRO [Concomitant]
     Indication: DEPRESSION
     Dosage: 20 MG, 1X/DAY
     Route: 048
     Dates: start: 2004
  8. SYMBICORT [Concomitant]
     Indication: EMPHYSEMA
     Dosage: 160/4.5MG, BID
     Dates: start: 20120901
  9. ATORVASTATIN [Concomitant]
     Indication: HYPERLIPIDAEMIA
     Dosage: 80 MG, QD
     Route: 048
     Dates: start: 20130410
  10. ANDRODERM [Concomitant]
     Indication: BLOOD TESTOSTERONE DECREASED
     Dosage: 4 MG, 1X/DAY
     Route: 061
     Dates: start: 20130714
  11. MS CONTIN [Concomitant]
     Indication: BACK PAIN
     Dosage: 30 MG, 2X/DAY
     Route: 048
     Dates: start: 20130923
  12. ONGLYZA [Concomitant]
     Indication: DIABETES MELLITUS
     Dosage: 5 MG, QD
     Route: 048
     Dates: start: 20130905
  13. METFORMIN [Concomitant]
     Indication: DIABETES MELLITUS
     Dosage: 500 MG, 2X/DAY
     Route: 048
     Dates: start: 20130905

REACTIONS (2)
  - Pneumonia [Recovered/Resolved with Sequelae]
  - Chronic obstructive pulmonary disease [Recovered/Resolved with Sequelae]
